FAERS Safety Report 4933514-6 (Version None)
Quarter: 2006Q1

REPORT INFORMATION
  Report Type: 
  Country: None (occurrence: None)
  Receive Date: 20060306
  Receipt Date: 20060227
  Transmission Date: 20060701
  Serious: Yes (Other)
  Sender: FDA-Public Use
  Company Number: PHRM2006AU00912

PATIENT
  Sex: Male

DRUGS (1)
  1. FAMVIR [Suspect]

REACTIONS (1)
  - PANCREATITIS [None]
